FAERS Safety Report 5135274-5 (Version None)
Quarter: 2006Q4

REPORT INFORMATION
  Report Type: 
  Country: None (occurrence: None)
  Receive Date: 20061026
  Receipt Date: 20061020
  Transmission Date: 20070319
  Serious: Yes (Death)
  Sender: FDA-Public Use
  Company Number: GR-AVENTIS-200615361EU

PATIENT
  Age: 53 Year
  Sex: Female

DRUGS (2)
  1. ENOXAPARIN SODIUM [Suspect]
     Indication: MYOCARDIAL INFARCTION
     Route: 058
     Dates: start: 20050101, end: 20050101
  2. CORONARY VASODILATORS [Concomitant]
     Indication: MYOCARDIAL INFARCTION
     Dates: start: 20050101, end: 20050101

REACTIONS (1)
  - MYOCARDIAL INFARCTION [None]
